FAERS Safety Report 5365658-1 (Version None)
Quarter: 2007Q2

REPORT INFORMATION
  Report Type: 
  Country: None (occurrence: None)
  Receive Date: 20070621
  Receipt Date: 20070614
  Transmission Date: 20071010
  Serious: Yes (Hospitalization, Disabling, Other)
  Sender: FDA-Public Use
  Company Number: US-ELI_LILLY_AND_COMPANY-US_0508120559

PATIENT
  Age: 55 Year
  Sex: Female
  Weight: 58.956 kg

DRUGS (4)
  1. AVANDIA [Concomitant]
  2. ANTIHYPERTENSIVES [Concomitant]
     Indication: HYPERTENSION
  3. TRENTAL [Concomitant]
     Indication: PERIPHERAL VASCULAR DISORDER
  4. HUMALOG MIX 75/25 [Suspect]
     Indication: DIABETES MELLITUS NON-INSULIN-DEPENDENT
     Dosage: UNK, OTHER
     Route: 058
     Dates: start: 20010101

REACTIONS (8)
  - ARTERIAL BYPASS OPERATION [None]
  - BLOOD GLUCOSE INCREASED [None]
  - FEELING ABNORMAL [None]
  - LEG AMPUTATION [None]
  - PAIN IN EXTREMITY [None]
  - POOR PERIPHERAL CIRCULATION [None]
  - RENAL FAILURE [None]
  - VASCULAR GRAFT OCCLUSION [None]
